FAERS Safety Report 8992145 (Version 7)
Quarter: 2013Q2

REPORT INFORMATION
  Report Type: Report from Study
  Country: CA (occurrence: CA)
  Receive Date: 20121231
  Receipt Date: 20130513
  Transmission Date: 20140414
  Serious: Yes (Disabling, Other)
  Sender: FDA-Public Use
  Company Number: CA-ROCHE-1171730

PATIENT
  Age: 62 Year
  Sex: Male
  Weight: 102.21 kg

DRUGS (14)
  1. XOLAIR [Suspect]
     Indication: ASTHMA
     Dosage: 375 MG, Q2W
     Route: 058
     Dates: start: 20060821
  2. XOLAIR [Suspect]
     Indication: OFF LABEL USE
     Dosage: 375 MG, Q2W
     Route: 058
     Dates: start: 20070418
  3. XOLAIR [Suspect]
     Dosage: 375 MG, Q2W
     Route: 058
     Dates: start: 20090618
  4. XOLAIR [Suspect]
     Dosage: 375 MG, Q2W
     Route: 058
     Dates: start: 20090702
  5. XOLAIR [Suspect]
     Dosage: 375 MG, Q2W
     Route: 058
     Dates: start: 20090924
  6. XOLAIR [Suspect]
     Dosage: 375 MG, Q2W
     Route: 058
     Dates: start: 20091008
  7. XOLAIR [Suspect]
     Dosage: 375 MG, Q2W
     Route: 058
     Dates: start: 20091203
  8. XOLAIR [Suspect]
     Dosage: 375 MG, Q2W
     Route: 058
     Dates: start: 20100330
  9. XOLAIR [Suspect]
     Route: 065
     Dates: start: 20121106
  10. XOLAIR [Suspect]
     Route: 065
     Dates: start: 20130226
  11. XOLAIR [Suspect]
     Route: 065
     Dates: start: 20120312
  12. XOLAIR [Suspect]
     Route: 065
     Dates: start: 20130326
  13. XOLAIR [Suspect]
     Route: 065
     Dates: start: 20130507
  14. PREDNISONE [Concomitant]
     Indication: PRODUCT USED FOR UNKNOWN INDICATION

REACTIONS (30)
  - Asthma [Not Recovered/Not Resolved]
  - Drug ineffective [Unknown]
  - Supraventricular tachycardia [Unknown]
  - Computerised tomogram abnormal [Unknown]
  - Haematoma [Unknown]
  - Lower respiratory tract infection [Unknown]
  - Blood pressure abnormal [Unknown]
  - Musculoskeletal pain [Unknown]
  - Hyperhidrosis [Unknown]
  - Nasopharyngitis [Unknown]
  - Heart rate irregular [Unknown]
  - Cough [Unknown]
  - Fatigue [Unknown]
  - Dyspnoea [Unknown]
  - Oropharyngeal pain [Unknown]
  - Blood glucose decreased [Unknown]
  - Influenza [Unknown]
  - Swelling [Unknown]
  - Abdominal discomfort [Unknown]
  - Palpitations [Unknown]
  - Crepitations [Unknown]
  - Cough [Unknown]
  - Rhinorrhoea [Unknown]
  - Influenza like illness [Unknown]
  - Injection site erythema [Unknown]
  - Injection site pain [Unknown]
  - Injection site swelling [Unknown]
  - Dizziness [Unknown]
  - Erythema [Unknown]
  - Respiratory disorder [Unknown]
